FAERS Safety Report 24001960 (Version 1)
Quarter: 2024Q2

REPORT INFORMATION
  Report Type: Spontaneous
  Country: CA (occurrence: CA)
  Receive Date: 20240622
  Receipt Date: 20240622
  Transmission Date: 20240715
  Serious: Yes (Other)
  Sender: FDA-Public Use
  Company Number: None

PATIENT
  Age: 51 Year
  Sex: Female

DRUGS (4)
  1. METHOTREXATE [Suspect]
     Active Substance: METHOTREXATE
     Indication: Arthritis
     Dosage: 1 EVERY 1 WEEKS
     Route: 065
  2. BELIMUMAB [Concomitant]
     Active Substance: BELIMUMAB
  3. HYDROXYCHLOROQUINE [Concomitant]
     Active Substance: HYDROXYCHLOROQUINE
     Indication: Arthritis
  4. PREDNISONE [Concomitant]
     Active Substance: PREDNISONE
     Indication: Arthritis

REACTIONS (10)
  - Alopecia [Unknown]
  - Arthralgia [Unknown]
  - Drug ineffective for unapproved indication [Unknown]
  - Dry eye [Unknown]
  - Dry mouth [Unknown]
  - Fatigue [Unknown]
  - Headache [Unknown]
  - Impaired quality of life [Unknown]
  - Joint swelling [Unknown]
  - Leukopenia [Unknown]
